FAERS Safety Report 6418009-5 (Version None)
Quarter: 2009Q4

REPORT INFORMATION
  Report Type: 
  Country: None (occurrence: None)
  Receive Date: 20091028
  Receipt Date: 20091027
  Transmission Date: 20100525
  Serious: Yes (Hospitalization)
  Sender: FDA-Public Use
  Company Number: FR-EISAI INC.-E2020-05277-CLI-FR

PATIENT
  Sex: Male
  Weight: 79 kg

DRUGS (4)
  1. ARICEPT [Suspect]
     Route: 048
     Dates: start: 20090831, end: 20090921
  2. BI-PRETERAX [Concomitant]
     Route: 048
     Dates: start: 20020101
  3. TANAKAN [Concomitant]
     Route: 048
     Dates: start: 20090101
  4. ASASSANTINE [Concomitant]
     Route: 048
     Dates: start: 20070101

REACTIONS (3)
  - GASTRIC ULCER HAEMORRHAGE [None]
  - SYNCOPE [None]
  - TACHYARRHYTHMIA [None]
